FAERS Safety Report 16216205 (Version 1)
Quarter: 2019Q2

REPORT INFORMATION
  Report Type: Spontaneous
  Country: IN (occurrence: IN)
  Receive Date: 20190419
  Receipt Date: 20190419
  Transmission Date: 20190711
  Serious: Yes (Hospitalization, Other)
  Sender: FDA-Public Use
  Company Number: IN-CIPLA LTD.-2019IN02020

PATIENT

DRUGS (2)
  1. BUDECORT [Suspect]
     Active Substance: BUDESONIDE
     Indication: WHEEZING
     Dosage: UNK (PMDI)
  2. LEVOLIN (LEVOSALBUTAMOL) [Suspect]
     Active Substance: LEVALBUTEROL
     Indication: WHEEZING
     Dosage: UNK, (PMDI)

REACTIONS (2)
  - Seizure [Recovered/Resolved]
  - Reaction to excipient [Unknown]
